FAERS Safety Report 5380804-1 (Version None)
Quarter: 2007Q3

REPORT INFORMATION
  Report Type: 
  Country: None (occurrence: None)
  Receive Date: 20070706
  Receipt Date: 20070702
  Transmission Date: 20080115
  Serious: Yes (Disabling, Other)
  Sender: FDA-Public Use
  Company Number: US-MERCK-0608USA01318

PATIENT
  Age: 49 Year
  Sex: Female
  Weight: 54 kg

DRUGS (7)
  1. FOSAMAX [Suspect]
     Indication: OSTEOPOROSIS
     Route: 048
     Dates: start: 19970121, end: 19970506
  2. FOSAMAX [Suspect]
     Route: 048
     Dates: end: 19970506
  3. ACTONEL [Suspect]
     Route: 065
     Dates: start: 20010101
  4. HYDROCORTISONE [Concomitant]
     Route: 065
     Dates: start: 19970101
  5. HORMONES (UNSPECIFIED) [Concomitant]
     Route: 065
     Dates: start: 19970101, end: 19980101
  6. [THERAPY UNSPECIFIED] [Concomitant]
     Route: 065
  7. MIACALCIN [Concomitant]
     Route: 065
     Dates: end: 19970101

REACTIONS (22)
  - ABDOMINAL DISCOMFORT [None]
  - ABDOMINAL PAIN [None]
  - ADRENAL INSUFFICIENCY [None]
  - ALOPECIA [None]
  - ANXIETY [None]
  - DEPRESSION [None]
  - DERMATITIS CONTACT [None]
  - DUPUYTREN'S CONTRACTURE [None]
  - DYSPNOEA [None]
  - FASCIITIS [None]
  - HAEMORRHOIDS [None]
  - JAW DISORDER [None]
  - LIPOPROTEIN (A) INCREASED [None]
  - MIGRAINE [None]
  - NOSE DEFORMITY [None]
  - OSTEOMYELITIS [None]
  - OSTEONECROSIS [None]
  - PERIODONTITIS [None]
  - PLANTAR FASCIITIS [None]
  - RHINORRHOEA [None]
  - SINUSITIS [None]
  - TEMPOROMANDIBULAR JOINT SYNDROME [None]
